FAERS Safety Report 9433947 (Version 1)
Quarter: 2013Q3

REPORT INFORMATION
  Report Type: Spontaneous
  Country: US (occurrence: US)
  Receive Date: 20130801
  Receipt Date: 20130801
  Transmission Date: 20140515
  Serious: No
  Sender: FDA-Public Use
  Company Number: US-009507513-1307USA006772

PATIENT
  Sex: Female

DRUGS (2)
  1. SAPHRIS [Suspect]
     Dosage: UNK
     Route: 048
     Dates: start: 201304
  2. INSULIN [Concomitant]
     Indication: TYPE 1 DIABETES MELLITUS

REACTIONS (7)
  - Hypomania [Unknown]
  - Hypoaesthesia oral [Unknown]
  - Blood glucose increased [Not Recovered/Not Resolved]
  - Increased appetite [Unknown]
  - Dysgeusia [Unknown]
  - Flatulence [Unknown]
  - Abdominal distension [Unknown]
